FAERS Safety Report 25255186 (Version 2)
Quarter: 2025Q3

REPORT INFORMATION
  Report Type: Report from Study
  Country: AU (occurrence: AU)
  Receive Date: 20250430
  Receipt Date: 20250721
  Transmission Date: 20251021
  Serious: Yes (Other)
  Sender: ABBVIE
  Company Number: AU-ABBVIE-6186190

PATIENT
  Age: 14 Year
  Sex: Female
  Weight: 49.4 kg

DRUGS (11)
  1. HUMIRA [Suspect]
     Active Substance: ADALIMUMAB
     Indication: Crohn^s disease
     Dosage: CITRATE FREE
     Route: 058
  2. HUMIRA [Suspect]
     Active Substance: ADALIMUMAB
     Indication: Crohn^s disease
     Dosage: CITRATE FREE
     Route: 058
     Dates: start: 20240306
  3. CONCERTA [Concomitant]
     Active Substance: METHYLPHENIDATE HYDROCHLORIDE
     Indication: Attention deficit hyperactivity disorder
     Route: 048
  4. CHLORAMPHENICOL [Concomitant]
     Active Substance: CHLORAMPHENICOL
     Indication: Eye disorder
     Route: 061
     Dates: start: 20240618
  5. IRON [Concomitant]
     Active Substance: IRON
     Indication: Blood iron decreased
     Dosage: ROUTE : PEG ?DOSAGE FORM : LIQUID.
     Dates: start: 20240120
  6. Kenacomb [Concomitant]
     Indication: Rash
     Route: 061
     Dates: start: 20240408
  7. peptamen ?junior [Concomitant]
     Indication: Product used for unknown indication
     Dosage: DOSAGE FORM: LIQUID?ROUTE: PEG
     Dates: start: 20241218
  8. CHOLESTYRAMINE [Concomitant]
     Active Substance: CHOLESTYRAMINE
     Indication: Inflammatory bowel disease
     Route: 048
     Dates: start: 20240408
  9. calcium ?carbonate [Concomitant]
     Indication: Osteoporosis
     Dosage: ROUTE: PEG
     Dates: start: 20240618
  10. VITAMIN D [Concomitant]
     Active Substance: VITAMIN D NOS
     Indication: Product used for unknown indication
     Dosage: DOSE : 1000U?DOSAGE FORM: LIQUID?ROUTE:PEG
  11. CREON [Concomitant]
     Active Substance: PANCRELIPASE AMYLASE\PANCRELIPASE LIPASE\PANCRELIPASE PROTEASE
     Indication: Pancreatic failure
     Dosage: DOSE: 1000U?ROUTE:PEG
     Dates: start: 20241210

REACTIONS (2)
  - Drug level decreased [Not Recovered/Not Resolved]
  - Off label use [Unknown]

NARRATIVE: CASE EVENT DATE: 20250121
